FAERS Safety Report 9914288 (Version 2)
Quarter: 2014Q3

REPORT INFORMATION
  Report Type: Spontaneous
  Country: ES (occurrence: None)
  Receive Date: 20140218
  Receipt Date: 20140707
  Transmission Date: 20150326
  Serious: Yes (Death, Hospitalization)
  Sender: FDA-Public Use
  Company Number: KAD201402-000134

PATIENT
  Age: 49 Year
  Sex: Male

DRUGS (16)
  1. OLANZAPINE (OLANZAPINE) [Concomitant]
     Active Substance: OLANZAPINE
  2. CEFTRIAXONE (CEFTRIAXONE SODIUM) [Concomitant]
  3. LORMETAZEPAM (LORMETAZEPAM) [Concomitant]
  4. MIRTAZAPINE (MIRTAZAPINE) [Concomitant]
     Active Substance: MIRTAZAPINE
  5. RIBAVIRIN. [Suspect]
     Active Substance: RIBAVIRIN
     Indication: CHRONIC HEPATITIS C
     Dosage: 200 MG, (1 DOSAGE FORM), ORAL
     Route: 048
     Dates: start: 20131118, end: 20131207
  6. SALINE (SODIUM CHLORIDE) [Concomitant]
  7. DEPAKINE CHRONO (SODIUM VALPROATE) [Concomitant]
  8. BMS 914143 (PEGINTERFERON LAMBDA) [Suspect]
     Active Substance: PEGINTERFERON LAMBDA-1A
     Indication: CHRONIC HEPATITIS C
     Dosage: 180 MCG, ONCE WEEKLY, SUBCUTANOUS
     Route: 058
     Dates: start: 20131118, end: 20131212
  9. TOPAMAX [Concomitant]
     Active Substance: TOPIRAMATE
  10. METHOTRIMEPRAZINR (LEVOMEPROMAZINE HYDROCHLORIDE) [Concomitant]
  11. PARACETAMOL (ACETAMINOPHEN) [Concomitant]
  12. NORVIR [Concomitant]
     Active Substance: RITONAVIR
  13. VIREAD (TENOFOVIR) [Concomitant]
  14. GLUCOSA (DEXTROSE) [Concomitant]
  15. DACLATASVIR [Suspect]
     Active Substance: DACLATASVIR
     Indication: CHRONIC HEPATITIS C
     Route: 048
     Dates: start: 20131118, end: 20131212
  16. REYATAZ [Concomitant]
     Active Substance: ATAZANAVIR SULFATE

REACTIONS (18)
  - Multi-organ failure [None]
  - Device related infection [None]
  - Escherichia test positive [None]
  - Coagulopathy [None]
  - Pleural effusion [None]
  - Multiple-drug resistance [None]
  - Anaemia [None]
  - Pyrexia [None]
  - Hepatic failure [None]
  - Pneumonia [None]
  - Renal failure [None]
  - General physical health deterioration [None]
  - Ascites [None]
  - Nephrolithiasis [None]
  - Respiratory distress [None]
  - Aspergillus test positive [None]
  - Respiratory failure [None]
  - Pathogen resistance [None]

NARRATIVE: CASE EVENT DATE: 20131212
